FAERS Safety Report 23296178 (Version 3)
Quarter: 2024Q4

REPORT INFORMATION
  Report Type: Spontaneous
  Country: US (occurrence: US)
  Receive Date: 20231214
  Receipt Date: 20241224
  Transmission Date: 20250115
  Serious: No
  Sender: SANOFI AVENTIS
  Company Number: US-SA-SAC20231208000114

PATIENT
  Age: 56 Year
  Sex: Female

DRUGS (14)
  1. DUPIXENT [Suspect]
     Active Substance: DUPILUMAB
     Indication: Asthma
     Dosage: 300 MG, QOW
     Route: 058
     Dates: start: 20230612
  2. BIFERA [Concomitant]
  3. BIFERA [Concomitant]
  4. BIOTIN [Concomitant]
     Active Substance: BIOTIN
  5. BIOTIN [Concomitant]
     Active Substance: BIOTIN
  6. CLARITIN [Concomitant]
     Active Substance: LORATADINE
  7. CLARITIN [Concomitant]
     Active Substance: LORATADINE
  8. VITAMIN D NOS [Concomitant]
     Active Substance: CHOLECALCIFEROL\ERGOCALCIFEROL
  9. XOPENEX HFA [Concomitant]
     Active Substance: LEVALBUTEROL TARTRATE
  10. XOPENEX HFA [Concomitant]
     Active Substance: LEVALBUTEROL TARTRATE
  11. GINGER [Concomitant]
     Active Substance: GINGER
  12. GINGER [Concomitant]
     Active Substance: GINGER
  13. HERBALS\TURMERIC [Concomitant]
     Active Substance: HERBALS\TURMERIC
  14. HERBALS\TURMERIC [Concomitant]
     Active Substance: HERBALS\TURMERIC

REACTIONS (3)
  - Impaired quality of life [Unknown]
  - Asthma [Unknown]
  - Drug ineffective [Unknown]

NARRATIVE: CASE EVENT DATE: 20231101
